FAERS Safety Report 25927414 (Version 1)
Quarter: 2025Q4

REPORT INFORMATION
  Report Type: Spontaneous
  Country: CA (occurrence: CA)
  Receive Date: 20251015
  Receipt Date: 20251015
  Transmission Date: 20260118
  Serious: Yes (Hospitalization, Other)
  Sender: HLS THERAPEUTICS
  Company Number: CA-HLS-202502763

PATIENT
  Age: 23 Year
  Sex: Male

DRUGS (3)
  1. ARIPIPRAZOLE [Concomitant]
     Active Substance: ARIPIPRAZOLE
     Indication: Schizophrenia
     Dosage: NOT SPECIFIED DOSAGE FORM
     Route: 065
  2. CLOZAPINE [Suspect]
     Active Substance: CLOZAPINE
     Indication: Schizophrenia
     Dosage: 1 EVERY 1 DAYS?AMOUNT: 12.5 MILLIGRAM?TABLETS DOSAGE FORM?THERAPY DURATION: 2 DAYS
     Route: 065
  3. CLOZAPINE [Suspect]
     Active Substance: CLOZAPINE
     Indication: Schizophrenia
     Dosage: 1 EVERY 1 DAYS?AMOUNT: 25 MILLIGRAM?UNKNOWN DOSAGE FORM?THERAPY DURATION: 7 DAYS
     Route: 065

REACTIONS (2)
  - Hallucination, auditory [Recovering/Resolving]
  - Hypomania [Recovering/Resolving]
